FAERS Safety Report 25918943 (Version 1)
Quarter: 2025Q4

REPORT INFORMATION
  Report Type: Spontaneous
  Country: CN (occurrence: CN)
  Receive Date: 20251014
  Receipt Date: 20251014
  Transmission Date: 20260118
  Serious: Yes (Other)
  Sender: BAYER HEALTHCARE PHARMACEUTICALS INC.
  Company Number: CN-BAYER-2025A135295

PATIENT
  Age: 72 Year
  Sex: Female
  Weight: 40 kg

DRUGS (1)
  1. GLUCOBAY [Suspect]
     Active Substance: ACARBOSE
     Indication: Type 2 diabetes mellitus
     Dosage: 50 MG, TID
     Route: 048
     Dates: start: 20250915, end: 20250922

REACTIONS (5)
  - Abdominal distension [Recovered/Resolved]
  - Vomiting [Recovered/Resolved]
  - Gallbladder enlargement [None]
  - Renal atrophy [None]
  - Gastrointestinal wall thickening [None]

NARRATIVE: CASE EVENT DATE: 20250922
